FAERS Safety Report 15786608 (Version 1)
Quarter: 2019Q1

REPORT INFORMATION
  Report Type: Spontaneous
  Country: US (occurrence: US)
  Receive Date: 20190103
  Receipt Date: 20190103
  Transmission Date: 20190417
  Serious: No
  Sender: FDA-Public Use
  Company Number: US-PURACAP PHARMACEUTICAL LLC-2018EPC00202

PATIENT
  Age: 83 Year
  Sex: Female
  Weight: 60.77 kg

DRUGS (1)
  1. DOXYCYCLINE HYCLATE. [Suspect]
     Active Substance: DOXYCYCLINE HYCLATE
     Indication: MALAISE
     Dosage: 100 MG, 2X/DAY
     Route: 048
     Dates: start: 20180328, end: 20180329

REACTIONS (5)
  - Head discomfort [Recovered/Resolved]
  - Blindness [Recovered/Resolved]
  - Movement disorder [Recovered/Resolved]
  - Swelling [Recovered/Resolved]
  - Fatigue [Recovered/Resolved]

NARRATIVE: CASE EVENT DATE: 20180329
